FAERS Safety Report 6291909-5 (Version None)
Quarter: 2009Q3

REPORT INFORMATION
  Report Type: 
  Country: None (occurrence: None)
  Receive Date: 20090730
  Receipt Date: 20090721
  Transmission Date: 20100115
  Serious: Yes (Hospitalization, Other)
  Sender: FDA-Public Use
  Company Number: FR-BAXTER-2009BH011886

PATIENT
  Age: 47 Year
  Sex: Female

DRUGS (8)
  1. HOLOXAN BAXTER [Suspect]
     Indication: VAGINAL CANCER
     Route: 042
     Dates: start: 20090409, end: 20090409
  2. HOLOXAN BAXTER [Suspect]
     Indication: VULVAL CANCER
     Route: 042
     Dates: start: 20090409, end: 20090409
  3. CISPLATYL [Suspect]
     Indication: VAGINAL CANCER
     Route: 042
     Dates: start: 20090408, end: 20090409
  4. CISPLATYL [Suspect]
     Indication: VULVAL CANCER
     Route: 042
     Dates: start: 20090408, end: 20090409
  5. TRUVADA [Suspect]
     Indication: DRUG USE FOR UNKNOWN INDICATION
     Route: 048
     Dates: start: 20090401, end: 20090419
  6. TAXOL [Suspect]
     Indication: VAGINAL CANCER
     Route: 065
     Dates: start: 20090408, end: 20090409
  7. TAXOL [Suspect]
     Indication: VULVAL CANCER
     Route: 065
     Dates: start: 20090408, end: 20090409
  8. KALETRA [Concomitant]
     Indication: DRUG USE FOR UNKNOWN INDICATION
     Route: 065

REACTIONS (2)
  - ASPERGILLOSIS [None]
  - RENAL TUBULAR DISORDER [None]
